FAERS Safety Report 15675081 (Version 1)
Quarter: 2018Q4

REPORT INFORMATION
  Report Type: Spontaneous
  Country: US (occurrence: US)
  Receive Date: 20181130
  Receipt Date: 20181130
  Transmission Date: 20190205
  Serious: No
  Sender: FDA-Public Use
  Company Number: US-PFIZER INC-2018451657

PATIENT
  Age: 75 Year
  Sex: Female
  Weight: 74.84 kg

DRUGS (3)
  1. LYRICA [Suspect]
     Active Substance: PREGABALIN
     Dosage: 50 MG, UNK
  2. LYRICA [Suspect]
     Active Substance: PREGABALIN
     Indication: NEURALGIA
     Dosage: 75 MG, DAILY (25MG / QTY 90 / DAY SUPPLY 30)
  3. LYRICA [Suspect]
     Active Substance: PREGABALIN
     Indication: BURNING SENSATION
     Dosage: UNK, 3X/DAY UNK, (25MG CAPSULES, 1-2 CAPSULES BY MOUTH THREE TIMES DAILY)
     Route: 048
     Dates: start: 201810

REACTIONS (5)
  - Impaired driving ability [Unknown]
  - Drug ineffective [Unknown]
  - Sedation [Unknown]
  - Intentional product misuse [Unknown]
  - Somnolence [Unknown]
